FAERS Safety Report 8236283-X (Version None)
Quarter: 2012Q1

REPORT INFORMATION
  Report Type: 
  Country: None (occurrence: None)
  Receive Date: 20120327
  Receipt Date: 20120315
  Transmission Date: 20120608
  Serious: Yes (Other)
  Sender: FDA-Public Use
  Company Number: DK-BAYER-2012-010904

PATIENT
  Age: 33 Year
  Sex: Female

DRUGS (1)
  1. MIRENA [Suspect]
     Indication: CONTRACEPTION
     Dosage: UNK
     Dates: start: 20120120, end: 20120123

REACTIONS (6)
  - VAGINAL HAEMORRHAGE [None]
  - MALAISE [None]
  - VULVOVAGINAL PAIN [None]
  - PAIN [None]
  - UTERINE TENDERNESS [None]
  - VAGINAL INFECTION [None]
